FAERS Safety Report 6944049-3 (Version None)
Quarter: 2010Q3

REPORT INFORMATION
  Report Type: 
  Country: None (occurrence: None)
  Receive Date: 20100827
  Receipt Date: 20100819
  Transmission Date: 20110219
  Serious: Yes (Hospitalization)
  Sender: FDA-Public Use
  Company Number: US-BIOGENIDEC-2010BI027571

PATIENT
  Sex: Female

DRUGS (3)
  1. AVONEX [Suspect]
     Indication: MULTIPLE SCLEROSIS
     Route: 030
     Dates: start: 20060620, end: 20070122
  2. AVONEX [Suspect]
     Route: 030
     Dates: start: 20080106, end: 20100101
  3. AVONEX [Suspect]
     Route: 030
     Dates: start: 20100101

REACTIONS (2)
  - CHOLANGITIS [None]
  - HEPATIC FAILURE [None]
